FAERS Safety Report 5282287-9 (Version None)
Quarter: 2007Q1

REPORT INFORMATION
  Report Type: 
  Country: None (occurrence: None)
  Receive Date: 20070331
  Receipt Date: 20070320
  Transmission Date: 20070707
  Serious: Yes (Other)
  Sender: FDA-Public Use
  Company Number: US-PFIZER INC-2007023416

PATIENT
  Sex: Male
  Weight: 129.3 kg

DRUGS (7)
  1. EXUBERA [Suspect]
     Indication: DIABETES MELLITUS
     Dosage: DAILY DOSE:13MG
  2. SITAGLIPTIN [Concomitant]
  3. AVANDIA [Concomitant]
  4. ACCUPRIL [Concomitant]
  5. PRAVACHOL [Concomitant]
  6. GLUCOPHAGE [Concomitant]
  7. DIABETA [Concomitant]

REACTIONS (4)
  - CORONARY ARTERY OCCLUSION [None]
  - OEDEMA PERIPHERAL [None]
  - RETINAL OEDEMA [None]
  - VISUAL ACUITY REDUCED [None]
